FAERS Safety Report 15675342 (Version 1)
Quarter: 2018Q4

REPORT INFORMATION
  Report Type: Spontaneous
  Country: ES (occurrence: ES)
  Receive Date: 20181130
  Receipt Date: 20181130
  Transmission Date: 20190205
  Serious: Yes (Hospitalization)
  Sender: FDA-Public Use
  Company Number: ES-APOTEX-2018AP025892

PATIENT
  Age: 25 Year
  Sex: Male

DRUGS (3)
  1. OLANZAPINE. [Suspect]
     Active Substance: OLANZAPINE
     Indication: PSYCHOTIC SYMPTOM
     Dosage: 10 MG, PER DAY
     Route: 065
  2. AMISULPRIDE [Suspect]
     Active Substance: AMISULPRIDE
     Indication: PSYCHOTIC SYMPTOM
     Dosage: 300 MG, PER DAY
     Route: 065
  3. ARIPIPRAZOLE. [Suspect]
     Active Substance: ARIPIPRAZOLE
     Indication: PSYCHOTIC SYMPTOM
     Dosage: 10 MG, PER DAY
     Route: 065

REACTIONS (8)
  - Social problem [Unknown]
  - Affective disorder [Unknown]
  - Increased appetite [Unknown]
  - Akathisia [Unknown]
  - Somnolence [Unknown]
  - Salivary hypersecretion [Unknown]
  - Constipation [Unknown]
  - Drug effect incomplete [Unknown]
